FAERS Safety Report 16041115 (Version 1)
Quarter: 2019Q1

REPORT INFORMATION
  Report Type: Spontaneous
  Country: US (occurrence: US)
  Receive Date: 20190306
  Receipt Date: 20190306
  Transmission Date: 20190418
  Serious: Yes (Other)
  Sender: FDA-Public Use
  Company Number: US-BION-007740

PATIENT
  Age: 31 Year
  Sex: Female

DRUGS (1)
  1. PROGESTERONE 200 MG [Suspect]
     Active Substance: PROGESTERONE
     Indication: PROGESTERONE DECREASED
     Route: 067
     Dates: start: 20181220

REACTIONS (8)
  - Abortion spontaneous [Unknown]
  - Drug ineffective for unapproved indication [Not Recovered/Not Resolved]
  - Maternal exposure during pregnancy [Unknown]
  - Vaginal discharge [Recovered/Resolved]
  - Product prescribing error [Not Recovered/Not Resolved]
  - Contraindicated product administered [Not Recovered/Not Resolved]
  - Product use issue [Not Recovered/Not Resolved]
  - Product colour issue [Unknown]
